FAERS Safety Report 17146714 (Version 1)
Quarter: 2019Q4

REPORT INFORMATION
  Report Type: Spontaneous
  Country: PL (occurrence: PL)
  Receive Date: 20191212
  Receipt Date: 20191212
  Transmission Date: 20200122
  Serious: Yes (Hospitalization)
  Sender: FDA-Public Use
  Company Number: PL-TEVA-2019-PL-1149890

PATIENT
  Age: 77 Year
  Sex: Male
  Weight: 74 kg

DRUGS (3)
  1. CISPLATIN. [Suspect]
     Active Substance: CISPLATIN
     Indication: GASTRIC CANCER
     Dosage: FIRST CYCLE OF CHEMOTHERAPY , 370 MG
     Route: 042
     Dates: start: 20160701, end: 20160701
  2. 5-FLUOROURACIL [Suspect]
     Active Substance: FLUOROURACIL
     Indication: GASTRIC CANCER
     Dosage: FIRST CYCLE OF CHEMOTHERAPY , 370 MG
     Route: 042
     Dates: start: 20160701, end: 20160707
  3. EPIRUBICINA [Suspect]
     Active Substance: EPIRUBICIN
     Indication: GASTRIC CANCER
     Dosage: FIRST CYCLE OF CHEMOTHERAPY , 93 MG
     Route: 042
     Dates: start: 20160701, end: 20160701

REACTIONS (2)
  - Acute kidney injury [Recovered/Resolved with Sequelae]
  - Tumour lysis syndrome [Recovered/Resolved with Sequelae]

NARRATIVE: CASE EVENT DATE: 20160706
